FAERS Safety Report 14738630 (Version 2)
Quarter: 2018Q2

REPORT INFORMATION
  Report Type: Report from Study
  Country: US (occurrence: BR)
  Receive Date: 20180409
  Receipt Date: 20180423
  Transmission Date: 20180711
  Serious: Yes (Hospitalization)
  Sender: FDA-Public Use
  Company Number: US-SUNOVION-2018SUN001356

PATIENT
  Sex: Male
  Weight: 63 kg

DRUGS (6)
  1. NICARDAL [Concomitant]
  2. FORASEQ [Suspect]
     Active Substance: BUDESONIDE\FORMOTEROL FUMARATE
     Indication: EMPHYSEMA
     Dosage: REGIMEN #1 (FORASEQ (FORMOTEROL FUMARATE BUDESONIDE) CAPSULE, 12/400 OT BID)
     Route: 065
  3. OMEPRAZOLE. [Concomitant]
     Active Substance: OMEPRAZOLE
     Indication: GASTRITIS
  4. INDACATEROL [Suspect]
     Active Substance: INDACATEROL
     Indication: EMPHYSEMA
     Dosage: UNK UNK, QD
     Route: 055
  5. GLYCOPYRROLATE. [Suspect]
     Active Substance: GLYCOPYRROLATE
     Indication: EMPHYSEMA
  6. GLYCOPYRROLATE. [Suspect]
     Active Substance: GLYCOPYRROLATE
     Indication: LUNG DISORDER
     Dosage: UNK, QD
     Route: 055

REACTIONS (7)
  - Hypovitaminosis [Unknown]
  - Vertigo [Unknown]
  - Dizziness [Unknown]
  - Drug ineffective [Unknown]
  - Asthenia [Unknown]
  - Product use in unapproved indication [Unknown]
  - Syncope [Unknown]
